FAERS Safety Report 12471147 (Version 3)
Quarter: 2018Q1

REPORT INFORMATION
  Report Type: Spontaneous
  Country: US (occurrence: US)
  Receive Date: 20160616
  Receipt Date: 20180108
  Transmission Date: 20180508
  Serious: Yes (Other)
  Sender: FDA-Public Use
  Company Number: US-TEVA-667469USA

PATIENT
  Age: 46 Year
  Sex: Female

DRUGS (4)
  1. COPAXONE [Suspect]
     Active Substance: GLATIRAMER ACETATE
     Indication: MULTIPLE SCLEROSIS
     Route: 058
  2. VITAMIN B12 [Concomitant]
     Active Substance: CYANOCOBALAMIN
  3. VITAMIN D3 [Concomitant]
     Active Substance: CHOLECALCIFEROL
  4. MAGNESIUM [Concomitant]
     Active Substance: MAGNESIUM

REACTIONS (4)
  - Movement disorder [Not Recovered/Not Resolved]
  - Multiple sclerosis relapse [Recovered/Resolved with Sequelae]
  - Musculoskeletal stiffness [Not Recovered/Not Resolved]
  - Pain [Not Recovered/Not Resolved]

NARRATIVE: CASE EVENT DATE: 201609
